FAERS Safety Report 4805197-7 (Version None)
Quarter: 2005Q4

REPORT INFORMATION
  Report Type: 
  Country: None (occurrence: None)
  Receive Date: 20051017
  Receipt Date: 20051004
  Transmission Date: 20060501
  Serious: Yes (Other)
  Sender: FDA-Public Use
  Company Number: 2005137638

PATIENT
  Sex: Female

DRUGS (3)
  1. DILANTIN [Suspect]
     Indication: CONVULSION
     Dosage: SEE IMAGE, ORAL
     Route: 048
     Dates: start: 20050101
  2. DILANTIN [Suspect]
     Indication: CONVULSION
     Dosage: SEE IMAGE, ORAL
     Route: 048
     Dates: start: 20050101
  3. PHENYTOIN [Suspect]
     Indication: CONVULSION
     Dosage: 300 MG (100 MG, QOD), ORAL
     Route: 048
     Dates: start: 20041001, end: 20050101

REACTIONS (5)
  - ANTICONVULSANT DRUG LEVEL INCREASED [None]
  - CONVULSION [None]
  - DRUG TOXICITY [None]
  - PHARMACEUTICAL PRODUCT COMPLAINT [None]
  - THERAPEUTIC RESPONSE UNEXPECTED WITH DRUG SUBSTITUTION [None]
